FAERS Safety Report 8539804-2 (Version None)
Quarter: 2012Q3

REPORT INFORMATION
  Report Type: 
  Country: None (occurrence: None)
  Receive Date: 20120726
  Receipt Date: 20120720
  Transmission Date: 20120928
  Serious: Yes (Hospitalization)
  Sender: FDA-Public Use
  Company Number: US-PFIZER INC-2012146756

PATIENT
  Sex: Female
  Weight: 95.238 kg

DRUGS (3)
  1. LYRICA [Suspect]
     Indication: NEURALGIA
     Dosage: 50 MG, 3X/DAY
     Route: 048
  2. METFORMIN [Concomitant]
     Indication: DIABETES MELLITUS
     Dosage: 500 MG, 2X/DAY
     Dates: start: 20070101
  3. INSULIN [Concomitant]
     Indication: DIABETES MELLITUS
     Dosage: 38 MG, 2X/DAY
     Dates: start: 20070101

REACTIONS (2)
  - BLOOD COUNT ABNORMAL [None]
  - TONSILLAR DISORDER [None]
